FAERS Safety Report 6709821-3 (Version None)
Quarter: 2010Q2

REPORT INFORMATION
  Report Type: 
  Country: None (occurrence: None)
  Receive Date: 20100504
  Receipt Date: 20100426
  Transmission Date: 20101027
  Serious: Yes (Death)
  Sender: FDA-Public Use
  Company Number: A0849702A

PATIENT
  Age: 84 Year
  Sex: Male
  Weight: 58.2 kg

DRUGS (3)
  1. ADVAIR DISKUS 100/50 [Suspect]
     Indication: ASTHMA
     Route: 055
     Dates: start: 20080820
  2. LISINOPRIL [Concomitant]
     Indication: HYPERTENSION
     Route: 048
     Dates: start: 20080709
  3. DOXAZOSIN [Concomitant]
     Route: 048
     Dates: start: 20081015

REACTIONS (1)
  - DEATH [None]
